FAERS Safety Report 12679875 (Version 1)
Quarter: 2016Q3

REPORT INFORMATION
  Report Type: Spontaneous
  Country: US (occurrence: US)
  Receive Date: 20160824
  Receipt Date: 20160824
  Transmission Date: 20161109
  Serious: No
  Sender: FDA-Public Use
  Company Number: US-JNJFOC-20160717694

PATIENT
  Sex: Female

DRUGS (1)
  1. NIZORAL A-D [Suspect]
     Active Substance: KETOCONAZOLE
     Indication: PROPHYLAXIS
     Dosage: ONCE OR TWICE A WEEK
     Route: 065

REACTIONS (3)
  - Physical product label issue [Unknown]
  - Product colour issue [Unknown]
  - Unintentional use for unapproved indication [Unknown]
